FAERS Safety Report 5071381-3 (Version None)
Quarter: 2006Q3

REPORT INFORMATION
  Report Type: 
  Country: None (occurrence: None)
  Receive Date: 20060804
  Receipt Date: 20060419
  Transmission Date: 20061208
  Serious: No
  Sender: FDA-Public Use
  Company Number: US-AMGEN-US176901

PATIENT
  Sex: Female
  Weight: 59 kg

DRUGS (15)
  1. ARANESP [Suspect]
     Indication: ANAEMIA OF MALIGNANT DISEASE
     Route: 058
     Dates: start: 20050524
  2. LISINOPRIL [Concomitant]
  3. NORVASC [Concomitant]
  4. SINGULAIR [Concomitant]
  5. PREDNISONE TAB [Concomitant]
  6. FEMARA [Concomitant]
  7. OMEPRAZOLE [Concomitant]
  8. LODINE [Concomitant]
  9. FOSAMAX [Concomitant]
  10. ALPRAZOLAM [Concomitant]
  11. TRAZODONE HCL [Concomitant]
  12. WYGESIC [Concomitant]
  13. GLUCOSAMINE [Concomitant]
  14. CALCIUM CITRATE [Concomitant]
  15. CYCLOBENZAPRINE HCL [Concomitant]

REACTIONS (4)
  - DIZZINESS [None]
  - FEELING HOT [None]
  - HYPERHIDROSIS [None]
  - VISION BLURRED [None]
